FAERS Safety Report 17892233 (Version 2)
Quarter: 2020Q2

REPORT INFORMATION
  Report Type: Report from Study
  Country: US (occurrence: US)
  Receive Date: 20200612
  Receipt Date: 20200629
  Transmission Date: 20200714
  Serious: Yes (Other)
  Sender: FDA-Public Use
  Company Number: US-NOVOPROD-732502

PATIENT
  Age: 62 Year
  Sex: Female
  Weight: 110 kg

DRUGS (1)
  1. SEMAGLUTIDE B 1.34 MG/ML PDS290 [Suspect]
     Active Substance: SEMAGLUTIDE
     Indication: TYPE 2 DIABETES MELLITUS
     Dosage: 1.0,MG,ONCE PER WEEK
     Route: 058
     Dates: start: 20200214, end: 20200529

REACTIONS (1)
  - Cholecystitis [Recovered/Resolved with Sequelae]

NARRATIVE: CASE EVENT DATE: 20200229
